FAERS Safety Report 9248288 (Version 1)
Quarter: 2013Q2

REPORT INFORMATION
  Report Type: Report from Study
  Country: CA (occurrence: CA)
  Receive Date: 20130423
  Receipt Date: 20130423
  Transmission Date: 20140414
  Serious: Yes (Other)
  Sender: FDA-Public Use
  Company Number: CA-SANOFI-AVENTIS-2013SA041244

PATIENT
  Age: 43 Year
  Sex: Female
  Weight: 55.7 kg

DRUGS (4)
  1. DOCETAXEL [Suspect]
     Indication: INVASIVE DUCTAL BREAST CARCINOMA
     Route: 041
     Dates: start: 20081106, end: 20081106
  2. DOCETAXEL [Suspect]
     Indication: INVASIVE DUCTAL BREAST CARCINOMA
     Route: 041
     Dates: start: 20090512, end: 20090512
  3. PLACEBO [Suspect]
     Indication: INVASIVE DUCTAL BREAST CARCINOMA
     Dates: start: 20081106, end: 20081106
  4. PLACEBO [Suspect]
     Indication: INVASIVE DUCTAL BREAST CARCINOMA
     Dates: start: 20090512, end: 20090512

REACTIONS (1)
  - Menstruation irregular [Not Recovered/Not Resolved]
